FAERS Safety Report 8404933-0 (Version None)
Quarter: 2012Q2

REPORT INFORMATION
  Report Type: 
  Country: None (occurrence: None)
  Receive Date: 20120601
  Receipt Date: 20120518
  Transmission Date: 20120825
  Serious: No
  Sender: FDA-Public Use
  Company Number: US-ASTRAZENECA-2012SE29316

PATIENT
  Age: 68 Year
  Sex: Male
  Weight: 86.6 kg

DRUGS (2)
  1. CRESTOR [Suspect]
     Indication: BLOOD CHOLESTEROL INCREASED
     Route: 048
  2. CRESTOR [Suspect]
     Indication: BLOOD TRIGLYCERIDES INCREASED
     Route: 048

REACTIONS (5)
  - DRUG HYPERSENSITIVITY [None]
  - CHEST DISCOMFORT [None]
  - INFLUENZA LIKE ILLNESS [None]
  - MYALGIA [None]
  - FATIGUE [None]
